FAERS Safety Report 12553014 (Version 2)
Quarter: 2016Q3

REPORT INFORMATION
  Report Type: Report from Study
  Country: US (occurrence: US)
  Receive Date: 20160713
  Receipt Date: 20160727
  Transmission Date: 20161109
  Serious: Yes (Hospitalization)
  Sender: FDA-Public Use
  Company Number: US-ACTELION-A-US2016-134400

PATIENT
  Age: 50 Year
  Sex: Male

DRUGS (5)
  1. UPTRAVI [Suspect]
     Active Substance: SELEXIPAG
     Dosage: 1000 MCG, BID
     Route: 048
  2. UPTRAVI [Suspect]
     Active Substance: SELEXIPAG
     Indication: PULMONARY HYPERTENSION
     Dosage: 400 MCG, BID
     Route: 048
     Dates: start: 20160318
  3. UPTRAVI [Suspect]
     Active Substance: SELEXIPAG
     Dosage: 1600 MCG, BID
     Route: 048
  4. UPTRAVI [Suspect]
     Active Substance: SELEXIPAG
     Dosage: 800 MCG, BID
     Route: 048
  5. VELETRI [Suspect]
     Active Substance: EPOPROSTENOL
     Indication: PULMONARY HYPERTENSION
     Dosage: 21.5 NG/KG, PER MIN
     Route: 042
     Dates: start: 20150115

REACTIONS (16)
  - Ammonia increased [Unknown]
  - Blood pressure increased [Unknown]
  - Dizziness [Unknown]
  - Haematemesis [Unknown]
  - Vomiting [Unknown]
  - Nausea [Unknown]
  - Fatigue [Unknown]
  - Condition aggravated [Unknown]
  - Oedema peripheral [Unknown]
  - Headache [Recovering/Resolving]
  - Hypotension [Unknown]
  - Pulmonary arterial hypertension [Recovered/Resolved]
  - Cold sweat [Unknown]
  - Condition aggravated [Recovered/Resolved]
  - Catheterisation cardiac [Unknown]
  - Drug intolerance [Unknown]
